FAERS Safety Report 16353819 (Version 11)
Quarter: 2021Q3

REPORT INFORMATION
  Report Type: Report from Study
  Country: NL (occurrence: NL)
  Receive Date: 20190524
  Receipt Date: 20210728
  Transmission Date: 20211014
  Serious: Yes (Hospitalization, Other)
  Sender: FDA-Public Use
  Company Number: NL-TAKEDA-2019TUS031259

PATIENT
  Sex: Female

DRUGS (4)
  1. PREDNISON [Concomitant]
     Active Substance: PREDNISONE
     Dosage: UNK
  2. ADALIMUMAB [Concomitant]
     Active Substance: ADALIMUMAB
     Dosage: UNK
  3. ADALIMUMAB [Concomitant]
     Active Substance: ADALIMUMAB
     Dosage: UNK
     Dates: start: 20161201, end: 20181003
  4. VEDOLIZUMAB [Suspect]
     Active Substance: VEDOLIZUMAB
     Indication: CROHN^S DISEASE
     Dosage: UNK
     Route: 042
     Dates: start: 20181017

REACTIONS (2)
  - Hepatic enzyme increased [Not Recovered/Not Resolved]
  - Crohn^s disease [Recovered/Resolved]

NARRATIVE: CASE EVENT DATE: 20181204
